FAERS Safety Report 23607009 (Version 1)
Quarter: 2024Q1

REPORT INFORMATION
  Report Type: Spontaneous
  Country: CH (occurrence: CH)
  Receive Date: 20240307
  Receipt Date: 20240307
  Transmission Date: 20240410
  Serious: Yes (Hospitalization)
  Sender: FDA-Public Use
  Company Number: None

PATIENT
  Age: 69 Year
  Sex: Female

DRUGS (3)
  1. ACLASTA [Suspect]
     Active Substance: ZOLEDRONIC ACID
     Indication: Osteoporosis
     Dosage: PRIMA SOMMINISTRAZIONE
     Route: 041
     Dates: start: 20231212, end: 20231212
  2. ESCITALOPRAM OXALATE [Concomitant]
     Active Substance: ESCITALOPRAM OXALATE
     Indication: Product used for unknown indication
     Dosage: TERAPIA CRONICA
     Route: 048
  3. XANAX [Concomitant]
     Active Substance: ALPRAZOLAM
     Indication: Product used for unknown indication
     Dosage: TERAPIA CRONICA
     Route: 048

REACTIONS (2)
  - Idiopathic orbital inflammation [Recovered/Resolved]
  - Inflammatory pseudotumour [Recovered/Resolved]

NARRATIVE: CASE EVENT DATE: 20231212
